FAERS Safety Report 13944655 (Version 1)
Quarter: 2017Q3

REPORT INFORMATION
  Report Type: Spontaneous
  Country: US (occurrence: US)
  Receive Date: 20170907
  Receipt Date: 20170907
  Transmission Date: 20171128
  Serious: No
  Sender: FDA-Public Use
  Company Number: US-ROCHE-1454305

PATIENT
  Age: 70 Year
  Sex: Female

DRUGS (10)
  1. PREDNISONE. [Concomitant]
     Active Substance: PREDNISONE
     Dosage: TAPERED THROUGH 9 MONTHS
     Route: 065
  2. PREDNISONE. [Concomitant]
     Active Substance: PREDNISONE
     Dosage: TAPERED THROUGH 9 MONTHS
     Route: 065
  3. DILTIAZEM. [Concomitant]
     Active Substance: DILTIAZEM
     Indication: HYPERTENSION
     Dosage: LOWER DOSE
     Route: 065
     Dates: start: 201402
  4. PREDNISONE. [Concomitant]
     Active Substance: PREDNISONE
     Dosage: TAPERED THROUGH 9 MONTHS
     Route: 065
  5. DILTIAZEM. [Concomitant]
     Active Substance: DILTIAZEM
     Route: 065
     Dates: start: 201302
  6. PREDNISONE. [Concomitant]
     Active Substance: PREDNISONE
     Dosage: TAPERED THROUGH 9 MONTHS
     Route: 065
  7. PREDNISONE. [Concomitant]
     Active Substance: PREDNISONE
     Dosage: TAPERED THROUGH 9 MONTHS
     Route: 065
  8. RITUXAN [Suspect]
     Active Substance: RITUXIMAB
     Indication: IMMUNE THROMBOCYTOPENIC PURPURA
     Dosage: EVERY MONDAY FOR 4 WEEKS
     Route: 065
     Dates: start: 201405, end: 20140801
  9. DILTIAZEM. [Concomitant]
     Active Substance: DILTIAZEM
     Dosage: HIGHER DOSE
     Route: 065
     Dates: start: 201407
  10. PREDNISONE. [Concomitant]
     Active Substance: PREDNISONE
     Indication: IMMUNE THROMBOCYTOPENIC PURPURA
     Dosage: FOR FIRST 3 MONTHS OF 9 MONTH TREATMENT
     Route: 065
     Dates: start: 201309

REACTIONS (3)
  - Palpitations [Unknown]
  - Alopecia [Not Recovered/Not Resolved]
  - Atrial fibrillation [Unknown]

NARRATIVE: CASE EVENT DATE: 201407
